FAERS Safety Report 6296669-X (Version None)
Quarter: 2009Q3

REPORT INFORMATION
  Report Type: 
  Country: None (occurrence: None)
  Receive Date: 20090804
  Receipt Date: 20090804
  Transmission Date: 20100115
  Serious: Yes (Death)
  Sender: FDA-Public Use
  Company Number: IT-WYE-G04180409

PATIENT
  Sex: Female

DRUGS (14)
  1. TAZOCIN [Suspect]
     Indication: SEPSIS
     Route: 042
     Dates: start: 20090627, end: 20090727
  2. DIFLUCAN [Suspect]
     Dates: start: 20090624, end: 20090724
  3. ALDACTONE [Concomitant]
     Dosage: 100 MG
  4. ENOXAPARIN SODIUM [Concomitant]
     Dosage: 12000 IU
  5. ALMARYTM [Concomitant]
  6. AMINO ACIDS NOS [Concomitant]
  7. ANTRA [Concomitant]
  8. ENTEROGERMINA [Concomitant]
  9. VENACTONE [Concomitant]
  10. FERROGRAD C [Concomitant]
  11. LASIX [Concomitant]
  12. CALCIUM-SANDOZ [Concomitant]
  13. CUBICIN [Suspect]
     Dates: start: 20090623, end: 20090723
  14. CATAPRESAN [Concomitant]

REACTIONS (2)
  - GASTROENTERITIS CLOSTRIDIAL [None]
  - MEGACOLON [None]
